FAERS Safety Report 5121456-5 (Version None)
Quarter: 2006Q4

REPORT INFORMATION
  Report Type: 
  Country: None (occurrence: None)
  Receive Date: 20061003
  Receipt Date: 20060920
  Transmission Date: 20070319
  Serious: Yes (Other)
  Sender: FDA-Public Use
  Company Number: 2006114913

PATIENT
  Age: 75 Year
  Sex: Female

DRUGS (11)
  1. LYRICA [Suspect]
     Indication: PAIN IN EXTREMITY
     Dosage: 150 MG (75 MG, 2 IN 1 D)
     Dates: start: 20060914
  2. AMLODIPINE [Concomitant]
  3. TAHOR (ATORVASTATIN) [Concomitant]
  4. LEVOTHYROXINE SODIUM [Concomitant]
  5. PLAVIX [Concomitant]
  6. ASPIRIN [Concomitant]
  7. SECTRAL [Concomitant]
  8. CLONAZEPAM [Concomitant]
  9. FUROSEMIDE [Concomitant]
  10. INSULIN (INSULIN) [Concomitant]
  11. ENALAPRIL MALEATE AND HYDROCHLOROTHIAZIDE [Concomitant]

REACTIONS (1)
  - BLOOD GLUCOSE INCREASED [None]
